FAERS Safety Report 8837681 (Version 3)
Quarter: 2013Q1

REPORT INFORMATION
  Report Type: Spontaneous
  Country: PT (occurrence: PT)
  Receive Date: 20121012
  Receipt Date: 20130131
  Transmission Date: 20140127
  Serious: Yes (Death, Hospitalization, Other)
  Sender: FDA-Public Use
  Company Number: PT-ROCHE-1143570

PATIENT
  Age: 64 Year
  Sex: Male

DRUGS (4)
  1. MABTHERA [Suspect]
     Indication: JUVENILE IDIOPATHIC ARTHRITIS
     Route: 042
     Dates: start: 20120626, end: 20120710
  2. METHOTREXATE [Suspect]
     Indication: JUVENILE IDIOPATHIC ARTHRITIS
     Route: 048
     Dates: start: 2011, end: 20120917
  3. METHOTREXATE [Suspect]
     Route: 048
     Dates: start: 20120917, end: 20121002
  4. PREDNISOLONE [Concomitant]
     Indication: JUVENILE IDIOPATHIC ARTHRITIS
     Route: 048
     Dates: start: 201210

REACTIONS (6)
  - Juvenile idiopathic arthritis [Fatal]
  - Pancytopenia [Unknown]
  - No therapeutic response [Unknown]
  - Myelodysplastic syndrome [Unknown]
  - Nosocomial infection [Fatal]
  - Pancytopenia [Unknown]
